FAERS Safety Report 8032786-1 (Version None)
Quarter: 2012Q1

REPORT INFORMATION
  Report Type: 
  Country: None (occurrence: None)
  Receive Date: 20120110
  Receipt Date: 20120106
  Transmission Date: 20120608
  Serious: Yes (Other)
  Sender: FDA-Public Use
  Company Number: US-PFIZER INC-2012004919

PATIENT
  Sex: Female
  Weight: 54.422 kg

DRUGS (2)
  1. ATENOLOL [Concomitant]
     Indication: ARRHYTHMIA
     Dosage: UNK
  2. PREMARIN [Suspect]
     Indication: VULVOVAGINAL DRYNESS
     Dosage: UNK, 3X/WEEK
     Route: 067
     Dates: start: 20101201

REACTIONS (1)
  - URINARY TRACT INFECTION [None]
